FAERS Safety Report 18835032 (Version 10)
Quarter: 2025Q3

REPORT INFORMATION
  Report Type: Report from Study
  Country: JP (occurrence: JP)
  Receive Date: 20210203
  Receipt Date: 20250903
  Transmission Date: 20251021
  Serious: Yes (Hospitalization, Other)
  Sender: NOVARTIS
  Company Number: NVSJ2021JP001043

PATIENT
  Age: 70 Year
  Sex: Male
  Weight: 54 kg

DRUGS (15)
  1. MAYZENT [Suspect]
     Active Substance: SIPONIMOD
     Indication: Secondary progressive multiple sclerosis
     Dosage: 0.25 MG, QD
     Route: 048
     Dates: start: 20210105, end: 20210106
  2. MAYZENT [Suspect]
     Active Substance: SIPONIMOD
     Dosage: 0.5 MG, QD
     Route: 048
     Dates: start: 20210107, end: 20210107
  3. MAYZENT [Suspect]
     Active Substance: SIPONIMOD
     Dosage: 0.75 MG, QD
     Route: 048
     Dates: start: 20210108, end: 20210108
  4. MAYZENT [Suspect]
     Active Substance: SIPONIMOD
     Dosage: 1.25 MG, QD
     Route: 048
     Dates: start: 20210109, end: 20210109
  5. MAYZENT [Suspect]
     Active Substance: SIPONIMOD
     Dosage: 2.0 MG, QD
     Route: 048
     Dates: start: 20210110, end: 20210126
  6. METHYLPREDNISOLONE [Concomitant]
     Active Substance: METHYLPREDNISOLONE
     Indication: Product used for unknown indication
     Route: 065
     Dates: start: 20210126
  7. IMMUNE GLOBULIN NOS [Concomitant]
     Active Substance: IMMUNE GLOBULIN NOS
     Indication: Product used for unknown indication
     Route: 065
     Dates: start: 20210208
  8. GABAPENTIN [Concomitant]
     Active Substance: GABAPENTIN
     Indication: Neuralgia
     Dosage: 200 MG, QID
     Route: 048
  9. RIVOTRIL [Concomitant]
     Active Substance: CLONAZEPAM
     Indication: Muscle spasms
     Dosage: 0.5 MG, QID
     Route: 048
  10. TRAMADOL HYDROCHLORIDE [Concomitant]
     Active Substance: TRAMADOL HYDROCHLORIDE
     Indication: Neuralgia
     Dosage: 100 MG, QD
     Route: 048
  11. CALCIUM POLYCARBOPHIL [Concomitant]
     Active Substance: CALCIUM POLYCARBOPHIL
     Indication: Abdominal discomfort
     Dosage: 1.2 G, TID
     Route: 048
  12. BIO-THREE [Concomitant]
     Active Substance: HERBALS
     Indication: Abdominal discomfort
     Dosage: 1 DOSAGE FORM, TID
     Route: 048
  13. LYRICA [Concomitant]
     Active Substance: PREGABALIN
     Indication: Neuralgia
     Dosage: 75 MG, TID
     Route: 048
  14. BELSOMRA [Concomitant]
     Active Substance: SUVOREXANT
     Indication: Insomnia
     Dosage: 15 MG, QD
     Route: 048
  15. VOLTAREN [Concomitant]
     Active Substance: DICLOFENAC SODIUM
     Indication: Neuralgia
     Dosage: 37.5 MG, BID
     Route: 048

REACTIONS (7)
  - Encephalitis autoimmune [Recovered/Resolved]
  - Aphasia [Recovered/Resolved]
  - Altered state of consciousness [Recovered/Resolved]
  - Atrial fibrillation [Recovered/Resolved]
  - Bradycardia [Recovered/Resolved]
  - Lymphocyte count decreased [Recovered/Resolved]
  - Expanded disability status scale score increased [Unknown]

NARRATIVE: CASE EVENT DATE: 20210109
